FAERS Safety Report 24629140 (Version 1)
Quarter: 2024Q4

REPORT INFORMATION
  Report Type: Spontaneous
  Country: CN (occurrence: CN)
  Receive Date: 20241118
  Receipt Date: 20241118
  Transmission Date: 20250115
  Serious: Yes (Death, Other)
  Sender: STRIDES
  Company Number: CN-STRIDES ARCOLAB LIMITED-2024SP014655

PATIENT
  Age: 73 Year
  Sex: Female

DRUGS (15)
  1. DOXORUBICIN [Suspect]
     Active Substance: DOXORUBICIN
     Indication: Diffuse large B-cell lymphoma
     Dosage: UNK, CYCLICAL (8 CYCLES)
     Route: 065
     Dates: start: 2021
  2. DOXORUBICIN [Suspect]
     Active Substance: DOXORUBICIN
     Indication: Colon cancer
  3. DOXORUBICIN [Suspect]
     Active Substance: DOXORUBICIN
     Indication: Adenocarcinoma of colon
  4. PREDNISOLONE [Suspect]
     Active Substance: PREDNISOLONE
     Indication: Diffuse large B-cell lymphoma
     Dosage: UNK, CYCLICAL (8 CYCLES)
     Route: 065
     Dates: start: 2021
  5. PREDNISOLONE [Suspect]
     Active Substance: PREDNISOLONE
     Indication: Colon cancer
  6. PREDNISOLONE [Suspect]
     Active Substance: PREDNISOLONE
     Indication: Adenocarcinoma of colon
  7. CYCLOPHOSPHAMIDE [Suspect]
     Active Substance: CYCLOPHOSPHAMIDE
     Indication: Diffuse large B-cell lymphoma
     Dosage: UNK, CYCLICAL (8 CYCLES)
     Route: 065
     Dates: start: 2021
  8. CYCLOPHOSPHAMIDE [Suspect]
     Active Substance: CYCLOPHOSPHAMIDE
     Indication: Adenocarcinoma of colon
  9. CYCLOPHOSPHAMIDE [Suspect]
     Active Substance: CYCLOPHOSPHAMIDE
     Indication: Colon cancer
  10. RITUXIMAB [Suspect]
     Active Substance: RITUXIMAB
     Indication: Diffuse large B-cell lymphoma
     Dosage: UNK, CYCLICAL (8 CYCLES)
     Route: 065
     Dates: start: 2021
  11. RITUXIMAB [Suspect]
     Active Substance: RITUXIMAB
     Indication: Colon cancer
  12. RITUXIMAB [Suspect]
     Active Substance: RITUXIMAB
     Indication: Adenocarcinoma of colon
  13. VINCRISTINE [Suspect]
     Active Substance: VINCRISTINE
     Indication: Diffuse large B-cell lymphoma
     Dosage: UNK, CYCLICAL (8 CYCLES)
     Route: 065
     Dates: start: 2021
  14. VINCRISTINE [Suspect]
     Active Substance: VINCRISTINE
     Indication: Colon cancer
  15. VINCRISTINE [Suspect]
     Active Substance: VINCRISTINE
     Indication: Adenocarcinoma of colon

REACTIONS (4)
  - Death [Fatal]
  - Drug ineffective [Unknown]
  - COVID-19 [Unknown]
  - Off label use [Unknown]

NARRATIVE: CASE EVENT DATE: 20210101
